FAERS Safety Report 10363824 (Version 2)
Quarter: 2014Q3

REPORT INFORMATION
  Report Type: Spontaneous
  Country: DE (occurrence: DE)
  Receive Date: 20140805
  Receipt Date: 20140915
  Transmission Date: 20150326
  Serious: Yes (Hospitalization)
  Sender: FDA-Public Use
  Company Number: DE-009507513-1408DEU000201

PATIENT
  Age: 59 Year
  Sex: Female
  Weight: 62 kg

DRUGS (4)
  1. CELESTAN [Suspect]
     Active Substance: BETAMETHASONE
     Indication: SYNOVIORTHESIS
     Dosage: 2X2.7 MG + 3.0MG
     Route: 014
     Dates: start: 20140710, end: 20140710
  2. YTTRIUM-90 [Concomitant]
     Active Substance: YTTRIUM Y-90
     Indication: SYNOVIORTHESIS
     Dosage: 205 MBQ MEGABECQUEREL
     Dates: start: 20140710, end: 20140710
  3. CELESTAN [Suspect]
     Active Substance: BETAMETHASONE
     Indication: RADIATION INJURY
  4. TECHNETIUM TC 99M SULFUR COLLOID [Concomitant]
     Active Substance: TECHNETIUM TC-99M SULFUR COLLOID
     Indication: SYNOVIORTHESIS
     Dosage: SMALL ADDITION

REACTIONS (4)
  - Sneezing [Recovered/Resolved]
  - Flushing [Recovered/Resolved]
  - Sensation of foreign body [Recovered/Resolved]
  - Sense of oppression [Recovered/Resolved]

NARRATIVE: CASE EVENT DATE: 20140711
